FAERS Safety Report 18997252 (Version 1)
Quarter: 2021Q1

REPORT INFORMATION
  Report Type: Spontaneous
  Country: US (occurrence: US)
  Receive Date: 20210310
  Receipt Date: 20210310
  Transmission Date: 20210420
  Serious: Yes (Hospitalization)
  Sender: FDA-Public Use
  Company Number: None

PATIENT
  Sex: Female

DRUGS (1)
  1. DANAZOL 200 MG TEVA PHARMACEUTICALS USA [Suspect]
     Active Substance: DANAZOL
     Indication: REFRACTORY CYTOPENIA WITH MULTILINEAGE DYSPLASIA
     Route: 048

REACTIONS (2)
  - Dysplasia [None]
  - Transfusion [None]
